FAERS Safety Report 11505991 (Version 1)
Quarter: 2015Q3

REPORT INFORMATION
  Report Type: Spontaneous
  Country: KR (occurrence: KR)
  Receive Date: 20150915
  Receipt Date: 20150915
  Transmission Date: 20151125
  Serious: Yes (Hospitalization)
  Sender: FDA-Public Use
  Company Number: KR-AMGEN-KORCT2015094287

PATIENT
  Age: 40 Year
  Sex: Female
  Weight: 61.8 kg

DRUGS (4)
  1. CYCLOPHOSPHAMIDE. [Concomitant]
     Active Substance: CYCLOPHOSPHAMIDE
     Dosage: 855 MG, UNK
     Route: 042
     Dates: start: 20150822, end: 20150822
  2. G-LASTA [Suspect]
     Active Substance: PEGFILGRASTIM
     Indication: FEBRILE NEUTROPENIA
     Dosage: 6 MG, 3X/WEEK
     Route: 058
     Dates: start: 20150823, end: 20150823
  3. DOXORUBICIN [Concomitant]
     Active Substance: DOXORUBICIN
     Dosage: 85 MG, UNK
     Route: 042
     Dates: start: 20150822, end: 20150822
  4. DOCETAXEL. [Concomitant]
     Active Substance: DOCETAXEL
     Dosage: 128 MG, UNK
     Route: 042
     Dates: start: 20150822, end: 20150822

REACTIONS (1)
  - Febrile neutropenia [Recovered/Resolved]

NARRATIVE: CASE EVENT DATE: 20150828
